FAERS Safety Report 18904061 (Version 1)
Quarter: 2021Q1

REPORT INFORMATION
  Report Type: Spontaneous
  Country: US (occurrence: US)
  Receive Date: 20210217
  Receipt Date: 20210217
  Transmission Date: 20210420
  Serious: Yes (Other)
  Sender: FDA-Public Use
  Company Number: US-MYLANLABS-2021M1009663

PATIENT
  Age: 37 Year
  Sex: Male

DRUGS (1)
  1. BUPRENORPHINE HYDROCHLORIDE/NALOXONE HYDROCHLORIDE [Suspect]
     Active Substance: BUPRENORPHINE HYDROCHLORIDE\NALOXONE HYDROCHLORIDE
     Indication: DRUG DEPENDENCE
     Dosage: SC INJECTION OF CRUSHED BUPRENORPHINE/NALOXONE TABLETS CONTAINING CROSPOVIDONE
     Route: 058

REACTIONS (3)
  - Drug abuse [Unknown]
  - Foreign body reaction [Unknown]
  - Subcutaneous abscess [Unknown]
